FAERS Safety Report 6191182-2 (Version None)
Quarter: 2009Q2

REPORT INFORMATION
  Report Type: 
  Country: None (occurrence: None)
  Receive Date: 20090513
  Receipt Date: 20090513
  Transmission Date: 20091009
  Serious: Yes (Other)
  Sender: FDA-Public Use
  Company Number: None

PATIENT
  Sex: Female
  Weight: 87.5442 kg

DRUGS (1)
  1. IMITREX [Suspect]
     Indication: MIGRAINE
     Dosage: 25 MG. ONCE CAN REPEAT ANOTHER PILL AFTER 2 HR IF NEEDED PER PATIENT PO
     Route: 048

REACTIONS (1)
  - DRUG INEFFECTIVE [None]
